FAERS Safety Report 7029145-7 (Version None)
Quarter: 2010Q4

REPORT INFORMATION
  Report Type: 
  Country: None (occurrence: None)
  Receive Date: 20101005
  Receipt Date: 20100928
  Transmission Date: 20110411
  Serious: No
  Sender: FDA-Public Use
  Company Number: US-PFIZER INC-2010116213

PATIENT
  Sex: Female
  Weight: 77.098 kg

DRUGS (1)
  1. CLEOCIN [Suspect]
     Indication: PROPHYLAXIS
     Dosage: 600 MG, UNK
     Route: 042
     Dates: start: 20100526, end: 20100526

REACTIONS (3)
  - PRURITUS [None]
  - RASH [None]
  - SKIN LESION [None]
